FAERS Safety Report 13725564 (Version 1)
Quarter: 2017Q3

REPORT INFORMATION
  Report Type: Spontaneous
  Country: US (occurrence: US)
  Receive Date: 20170706
  Receipt Date: 20170706
  Transmission Date: 20171127
  Serious: Yes (Other)
  Sender: FDA-Public Use
  Company Number: None

PATIENT
  Age: 89 Year
  Sex: Female
  Weight: 63.9 kg

DRUGS (1)
  1. LATANOPROST. [Suspect]
     Active Substance: LATANOPROST
     Indication: GLAUCOMA
     Dosage: ?          OTHER DOSE:GTT;?
     Route: 047
     Dates: start: 20170625, end: 20170706

REACTIONS (3)
  - Pollakiuria [None]
  - Peripheral swelling [None]
  - Polyuria [None]

NARRATIVE: CASE EVENT DATE: 20170625
